FAERS Safety Report 5200524-3 (Version None)
Quarter: 2006Q4

REPORT INFORMATION
  Report Type: 
  Country: None (occurrence: None)
  Receive Date: 20061016
  Receipt Date: 20060801
  Transmission Date: 20070319
  Serious: No
  Sender: FDA-Public Use
  Company Number: 2006SP002865

PATIENT
  Age: 47 Year
  Sex: Female

DRUGS (1)
  1. LUNESTA [Suspect]
     Indication: DRUG USE FOR UNKNOWN INDICATION
     Dosage: 1MG;UNKNOWN;ORAL
     Route: 048

REACTIONS (1)
  - DYSGEUSIA [None]
